FAERS Safety Report 15946382 (Version 1)
Quarter: 2019Q1

REPORT INFORMATION
  Report Type: Spontaneous
  Country: US (occurrence: US)
  Receive Date: 20190211
  Receipt Date: 20190211
  Transmission Date: 20190417
  Serious: Yes (Hospitalization, Other)
  Sender: FDA-Public Use
  Company Number: US-UNICHEM PHARMACEUTICALS (USA) INC-UCM201902-000052

PATIENT
  Age: 29 Year
  Sex: Female

DRUGS (1)
  1. TOPIRAMATE. [Suspect]
     Active Substance: TOPIRAMATE

REACTIONS (10)
  - Choroidal effusion [Recovered/Resolved]
  - Anaemia [Recovering/Resolving]
  - Angle closure glaucoma [Recovered/Resolved]
  - Retinal detachment [Recovering/Resolving]
  - Nausea [Unknown]
  - Thrombocytopenia [Recovering/Resolving]
  - Retinal haemorrhage [Recovering/Resolving]
  - Vision blurred [Recovering/Resolving]
  - Visual impairment [Recovering/Resolving]
  - Vomiting [Unknown]
